FAERS Safety Report 5533523-2 (Version None)
Quarter: 2007Q4

REPORT INFORMATION
  Report Type: 
  Country: None (occurrence: None)
  Receive Date: 20071204
  Receipt Date: 20071130
  Transmission Date: 20080405
  Serious: Yes (Death)
  Sender: FDA-Public Use
  Company Number: US-ELI_LILLY_AND_COMPANY-US200711006960

PATIENT
  Age: 77 Year
  Sex: Male

DRUGS (3)
  1. ALIMTA [Suspect]
     Indication: LUNG NEOPLASM MALIGNANT
     Dosage: UNK, OTHER
     Dates: start: 20071129
  2. VITAMIN B-12 [Concomitant]
     Dates: start: 20070101
  3. FOLIC ACID [Concomitant]
     Dates: start: 20071129

REACTIONS (1)
  - DEATH [None]
